FAERS Safety Report 17469012 (Version 2)
Quarter: 2020Q1

REPORT INFORMATION
  Report Type: Spontaneous
  Country: ES (occurrence: ES)
  Receive Date: 20200227
  Receipt Date: 20200312
  Transmission Date: 20200409
  Serious: Yes (Other)
  Sender: FDA-Public Use
  Company Number: ES-ASTRAZENECA-2020SE25890

PATIENT
  Sex: Female
  Weight: 70 kg

DRUGS (7)
  1. FORMOTEROL/BUDESONIDE (INHALATED) [Concomitant]
     Route: 055
  2. FASENRA [Suspect]
     Active Substance: BENRALIZUMAB
     Dosage: THE EVENT HAPPENED AFTER THE 4TH DOSE
     Route: 058
     Dates: start: 20190905
  3. ALPRAZOLAM. [Concomitant]
     Active Substance: ALPRAZOLAM
  4. PAROXETINE. [Concomitant]
     Active Substance: PAROXETINE
  5. SIMVASTATIN. [Concomitant]
     Active Substance: SIMVASTATIN
  6. BR. TIOTROPIUM (INHALATED) [Concomitant]
     Route: 055
  7. PREDNISONE. [Concomitant]
     Active Substance: PREDNISONE
     Dosage: 5 MG/24 H DESCENDING DOSE

REACTIONS (1)
  - Pulmonary embolism [Unknown]
